FAERS Safety Report 5140034-5 (Version None)
Quarter: 2006Q4

REPORT INFORMATION
  Report Type: 
  Country: None (occurrence: None)
  Receive Date: 20061025
  Receipt Date: 20061025
  Transmission Date: 20070319
  Serious: No
  Sender: FDA-Public Use
  Company Number: None

PATIENT
  Sex: Female

DRUGS (2)
  1. TENORETIC 50 [Suspect]
     Dosage: Q 24 HR QD PO OVER 11 YEARS
     Route: 048
  2. FOSINOPRIL SODIUM [Suspect]
     Dosage: Q 24 H QD PO OVER 11 YEARS
     Route: 048

REACTIONS (3)
  - ASTHENIA [None]
  - DYSPNOEA [None]
  - VISION BLURRED [None]
